FAERS Safety Report 5515031-8 (Version None)
Quarter: 2007Q4

REPORT INFORMATION
  Report Type: 
  Country: None (occurrence: None)
  Receive Date: 20071113
  Receipt Date: 20061122
  Transmission Date: 20080405
  Serious: No
  Sender: FDA-Public Use
  Company Number: A0628470A

PATIENT
  Age: 71 Year
  Sex: Female

DRUGS (8)
  1. COREG [Suspect]
     Dosage: 25MG TWICE PER DAY
     Route: 048
     Dates: start: 20060601
  2. FOLIC ACID [Concomitant]
  3. UNSPECIFIED MEDICATION [Concomitant]
  4. PLAVIX [Concomitant]
  5. SYNTHROID [Concomitant]
  6. FOSAMAX [Concomitant]
  7. NASACORT AQ [Concomitant]
  8. ALBUTEROL [Concomitant]

REACTIONS (1)
  - DYSPNOEA [None]
